FAERS Safety Report 9150394 (Version 1)
Quarter: 2013Q1

REPORT INFORMATION
  Report Type: Spontaneous
  Country: GB (occurrence: GB)
  Receive Date: 20130308
  Receipt Date: 20130308
  Transmission Date: 20140127
  Serious: Yes (Other)
  Sender: FDA-Public Use
  Company Number: GB-ROCHE-1197310

PATIENT
  Age: 37 Year
  Sex: Female

DRUGS (4)
  1. ROACCUTANE [Suspect]
     Indication: ACNE
     Route: 048
     Dates: start: 20121205, end: 20121211
  2. DUAC [Concomitant]
     Indication: PRODUCT USED FOR UNKNOWN INDICATION
     Route: 061
  3. LYMECYCLINE [Concomitant]
     Indication: PRODUCT USED FOR UNKNOWN INDICATION
     Route: 048
  4. PROGESTERONE [Concomitant]
     Indication: CONTRACEPTION
     Route: 048

REACTIONS (1)
  - Mouth ulceration [Recovered/Resolved]
